FAERS Safety Report 6878354-6 (Version None)
Quarter: 2010Q3

REPORT INFORMATION
  Report Type: 
  Country: None (occurrence: None)
  Receive Date: 20100728
  Receipt Date: 20100715
  Transmission Date: 20110219
  Serious: Yes (Hospitalization, Other)
  Sender: FDA-Public Use
  Company Number: US-PFIZER INC-2010088466

PATIENT
  Sex: Female
  Weight: 91 kg

DRUGS (13)
  1. NEURONTIN [Suspect]
     Indication: EPILEPSY
     Dosage: 1600 MG, 4X/DAY
     Route: 048
     Dates: start: 20070101, end: 20091017
  2. NEURONTIN [Suspect]
     Dosage: 400 MG, 4X/DAY
     Route: 048
     Dates: start: 20091021
  3. TEGRETOL [Suspect]
     Indication: EPILEPSY
     Dosage: 1200 MG, 1X/DAY
     Route: 048
     Dates: start: 20070101, end: 20091017
  4. TEGRETOL [Suspect]
     Dosage: 1200 MG, 1X/DAY
     Route: 048
     Dates: start: 20091021
  5. KEPPRA [Suspect]
     Indication: EPILEPSY
     Dosage: 2000 MG, 2X/DAY
     Route: 048
     Dates: start: 20090301, end: 20091017
  6. KEPPRA [Suspect]
     Dosage: 1000 MG, 2X/DAY
     Route: 048
     Dates: start: 20091021
  7. ATENOLOL [Concomitant]
     Indication: HYPERTENSION
     Dosage: 100 MG, 1X/DAY
     Route: 048
     Dates: start: 20040101
  8. DICLOFENAC SODIUM [Concomitant]
     Indication: OSTEOARTHRITIS
     Dosage: 150 MG, 2X/DAY
     Route: 048
     Dates: start: 20040101
  9. LEVOTHYROXINE SODIUM [Concomitant]
     Indication: HYPOTHYROIDISM
     Dosage: 100 MCG, 1X/DAY
     Route: 048
     Dates: start: 20060501
  10. VALSARTAN [Concomitant]
     Indication: HYPERTENSION
     Dosage: 80 MG, 1X/DAY
     Route: 048
     Dates: start: 20070101
  11. VYTORIN [Concomitant]
     Indication: HYPERCHOLESTEROLAEMIA
     Dosage: 20 MG, AT BEDTIME
     Route: 048
     Dates: start: 20080301
  12. VESICARE [Concomitant]
     Indication: HYPERTONIC BLADDER
     Dosage: 5 MG, 1X/DAY
     Route: 061
     Dates: start: 20000101
  13. POTASSIUM CHLORIDE [Concomitant]
     Indication: HYPERTENSION
     Dosage: 20 MG, 2X/DAY
     Route: 048
     Dates: start: 20070101

REACTIONS (2)
  - STATUS EPILEPTICUS [None]
  - WITHDRAWAL SYNDROME [None]
